FAERS Safety Report 9792088 (Version 2)
Quarter: 2014Q1

REPORT INFORMATION
  Report Type: Spontaneous
  Country: US (occurrence: US)
  Receive Date: 20140102
  Receipt Date: 20140224
  Transmission Date: 20141002
  Serious: No
  Sender: FDA-Public Use
  Company Number: US-009507513-1401USA000134

PATIENT
  Age: 32 Year
  Sex: Female
  Weight: 60.77 kg

DRUGS (4)
  1. NUVARING [Suspect]
     Indication: CONTRACEPTION
     Dosage: 3 WEEK IN 1 WEEK OUT
     Route: 067
     Dates: start: 20131229, end: 20131230
  2. WELLBUTRIN [Concomitant]
     Indication: DEPRESSION
     Dosage: 300, QD
     Route: 048
     Dates: start: 201102
  3. EFFEXOR [Concomitant]
     Indication: DEPRESSION
     Dosage: 7.5 G, TID
     Route: 048
     Dates: start: 201102
  4. TRAZODONE HYDROCHLORIDE [Concomitant]
     Indication: DEPRESSION
     Dosage: 100 G, HS
     Route: 048
     Dates: start: 201102

REACTIONS (4)
  - Vulvovaginal swelling [Recovering/Resolving]
  - Swelling [Recovering/Resolving]
  - Oedema [Not Recovered/Not Resolved]
  - Erythema [Not Recovered/Not Resolved]
